FAERS Safety Report 8990923 (Version 1)
Quarter: 2012Q4

REPORT INFORMATION
  Report Type: Spontaneous
  Country: US (occurrence: None)
  Receive Date: 20121227
  Receipt Date: 20121227
  Transmission Date: 20130627
  Serious: Yes (Other)
  Sender: FDA-Public Use
  Company Number: None

PATIENT
  Age: 11 Year
  Sex: Male
  Weight: 68.04 kg

DRUGS (8)
  1. METHOTREXATE [Suspect]
     Indication: JUVENILE RHEUMATOID ARTHRITIS
     Dosage: unknown  x 1  sq
one dose
     Route: 058
  2. PRILOSEC [Concomitant]
  3. CELEBREX [Concomitant]
  4. PRED [Concomitant]
  5. TUMS [Concomitant]
  6. BENADRYL [Concomitant]
  7. MULTI VIT [Concomitant]
  8. JUICE PLUS [Concomitant]

REACTIONS (5)
  - Nausea [None]
  - Abdominal pain [None]
  - Pallor [None]
  - Asthenia [None]
  - Cold sweat [None]
